FAERS Safety Report 10515335 (Version 1)
Quarter: 2014Q4

REPORT INFORMATION
  Report Type: Spontaneous
  Country: US (occurrence: US)
  Receive Date: 20141014
  Receipt Date: 20141014
  Transmission Date: 20150528
  Serious: No
  Sender: FDA-Public Use
  Company Number: US-ASTRAZENECA-2014SE69511

PATIENT
  Age: 70 Year
  Sex: Female
  Weight: 49 kg

DRUGS (3)
  1. ENTOCORT EC [Suspect]
     Active Substance: BUDESONIDE
     Indication: COLITIS
     Dosage: THREE 3 MG TABLETS FOR 2 WEEKS
     Route: 048
     Dates: start: 201312
  2. ENTOCORT EC [Suspect]
     Active Substance: BUDESONIDE
     Indication: COLITIS
     Dosage: TWO 3 MG TABLETS FOR 2 WEEKS
     Route: 048
  3. ENTOCORT EC [Suspect]
     Active Substance: BUDESONIDE
     Indication: COLITIS
     Dosage: ONE 3 MG TABLET FOR 2 WEEKS
     Route: 048
     Dates: end: 2014

REACTIONS (4)
  - Weight decreased [Unknown]
  - Anxiety [Unknown]
  - Product use issue [Unknown]
  - Adverse event [Unknown]
